FAERS Safety Report 22047048 (Version 1)
Quarter: 2023Q1

REPORT INFORMATION
  Report Type: Report from Study
  Country: US (occurrence: US)
  Receive Date: 20230301
  Receipt Date: 20230301
  Transmission Date: 20230417
  Serious: Yes (Hospitalization)
  Sender: FDA-Public Use
  Company Number: US-ABBVIE-4321901

PATIENT
  Age: 66 Year
  Sex: Male

DRUGS (8)
  1. VENCLEXTA [Suspect]
     Active Substance: VENETOCLAX
     Indication: Acute myeloid leukaemia
     Route: 048
     Dates: start: 20221231, end: 20230223
  2. 0.5 mg Xanax, Xr [Concomitant]
     Indication: Product used for unknown indication
     Route: 048
  3. 150 mg Trazodone HCL [Concomitant]
     Indication: Product used for unknown indication
     Route: 048
  4. 10 mg Baclofen [Concomitant]
     Indication: Product used for unknown indication
     Route: 048
  5. 5 mg Oxycodone HCL [Concomitant]
     Indication: Product used for unknown indication
     Route: 048
  6. ACETAMINOPHEN\HYDROCODONE [Concomitant]
     Active Substance: ACETAMINOPHEN\HYDROCODONE
     Indication: Product used for unknown indication
     Route: 048
  7. 8 mg Ondansetron HCL [Concomitant]
     Indication: Product used for unknown indication
     Route: 048
  8. 300 mg Gabapentin [Concomitant]
     Indication: Product used for unknown indication
     Route: 048

REACTIONS (3)
  - Painful respiration [Not Recovered/Not Resolved]
  - Crohn^s disease [Recovering/Resolving]
  - Pneumonia [Unknown]

NARRATIVE: CASE EVENT DATE: 20230201
